FAERS Safety Report 24994418 (Version 1)
Quarter: 2025Q1

REPORT INFORMATION
  Report Type: Spontaneous
  Country: PL (occurrence: PL)
  Receive Date: 20250221
  Receipt Date: 20250221
  Transmission Date: 20250409
  Serious: Yes (Hospitalization)
  Sender: BAYER HEALTHCARE PHARMACEUTICALS INC.
  Company Number: PL-BAYER-2025A020758

PATIENT
  Age: 35 Year
  Sex: Female

DRUGS (1)
  1. MIRENA [Suspect]
     Active Substance: LEVONORGESTREL
     Dosage: 20?G/DAY
     Route: 015
     Dates: start: 20231020, end: 20240425

REACTIONS (2)
  - Uterine polyp [Recovered/Resolved]
  - Genital haemorrhage [None]

NARRATIVE: CASE EVENT DATE: 20240220
